FAERS Safety Report 7575289 (Version 2)
Quarter: 2013Q2

REPORT INFORMATION
  Report Type: Spontaneous
  Country: FR (occurrence: FR)
  Receive Date: 20100907
  Receipt Date: 20130410
  Transmission Date: 20140414
  Serious: Yes (Hospitalization)
  Sender: FDA-Public Use
  Company Number: FR-BRISTOL-MYERS SQUIBB COMPANY-15268972

PATIENT
  Age: 55 Year
  Sex: Male

DRUGS (8)
  1. GLUCOPHAGE TABS 1000 MG [Suspect]
     Route: 048
     Dates: end: 20100530
  2. BYETTA [Suspect]
     Dosage: 10MG BID: UNKNOWN DATE MAY2010 TO 30MAY2010
     Route: 058
     Dates: start: 201002, end: 20100530
  3. CRESTOR [Suspect]
     Dosage: TABLET
     Route: 048
     Dates: end: 20100530
  4. PLAVIX [Suspect]
     Dosage: TABLET
     Route: 048
     Dates: end: 20100530
  5. TRIATEC [Suspect]
     Dosage: TABLET
     Route: 048
     Dates: end: 20100530
  6. NOVONORM [Suspect]
     Dates: end: 20100530
  7. CELESTENE [Suspect]
     Dates: end: 20100530
  8. OROCAL D3 [Suspect]
     Dates: end: 20100530

REACTIONS (1)
  - Pancreatitis [Recovered/Resolved]
